FAERS Safety Report 5796644-5 (Version None)
Quarter: 2008Q2

REPORT INFORMATION
  Report Type: 
  Country: None (occurrence: None)
  Receive Date: 20080630
  Receipt Date: 20080630
  Transmission Date: 20081010
  Serious: Yes (Hospitalization)
  Sender: FDA-Public Use
  Company Number: None

PATIENT
  Sex: Female
  Weight: 90 kg

DRUGS (2)
  1. CLOLAR [Suspect]
     Dosage: 390 MG
  2. CYTARABINE [Suspect]
     Dosage: 9700 MG

REACTIONS (31)
  - ABDOMINAL PAIN [None]
  - ANAEMIA [None]
  - BACTERIAL INFECTION [None]
  - BLOOD CULTURE POSITIVE [None]
  - BLOOD FIBRINOGEN INCREASED [None]
  - BLOOD PRESSURE SYSTOLIC DECREASED [None]
  - CATHETER SITE HAEMORRHAGE [None]
  - CLOSTRIDIUM DIFFICILE TOXIN TEST POSITIVE [None]
  - DISSEMINATED INTRAVASCULAR COAGULATION [None]
  - DRUG INEFFECTIVE [None]
  - DYSPNOEA [None]
  - FLUID OVERLOAD [None]
  - FLUID RETENTION [None]
  - GENERAL PHYSICAL HEALTH DETERIORATION [None]
  - HYPERCAPNIA [None]
  - HYPOTENSION [None]
  - INTERNATIONAL NORMALISED RATIO INCREASED [None]
  - METABOLIC ACIDOSIS [None]
  - MULTI-ORGAN FAILURE [None]
  - NAUSEA [None]
  - OLIGURIA [None]
  - PALMAR-PLANTAR ERYTHRODYSAESTHESIA SYNDROME [None]
  - PO2 ABNORMAL [None]
  - RENAL IMPAIRMENT [None]
  - SEPSIS [None]
  - SKIN DISORDER [None]
  - SUBARACHNOID HAEMORRHAGE [None]
  - TACHYCARDIA [None]
  - THROMBOCYTOPENIA [None]
  - TRANSAMINASES INCREASED [None]
  - VOMITING [None]
